FAERS Safety Report 4265558-4 (Version None)
Quarter: 2004Q1

REPORT INFORMATION
  Report Type: 
  Country: None (occurrence: None)
  Receive Date: 20040106
  Receipt Date: 20031229
  Transmission Date: 20041129
  Serious: Yes (Life-Threatening, Hospitalization, Other)
  Sender: FDA-Public Use
  Company Number: 2003118523

PATIENT
  Age: 8 Month
  Sex: Female

DRUGS (1)
  1. ZITHROMAX [Suspect]
     Indication: RESPIRATORY DISORDER
     Dosage: 500 MG, INTRAVENOUS
     Route: 042
     Dates: start: 20031101, end: 20031101

REACTIONS (4)
  - ATRIOVENTRICULAR BLOCK [None]
  - CARDIAC ARREST [None]
  - MEDICATION ERROR [None]
  - OVERDOSE [None]
